FAERS Safety Report 18030294 (Version 1)
Quarter: 2020Q3

REPORT INFORMATION
  Report Type: Spontaneous
  Country: US (occurrence: US)
  Receive Date: 20200715
  Receipt Date: 20200715
  Transmission Date: 20201103
  Serious: No
  Sender: FDA-Public Use
  Company Number: US-OPTINOSE US, INC-2020OPT000093

PATIENT
  Age: 29 Year
  Sex: Male
  Weight: 97.16 kg

DRUGS (3)
  1. XHANCE [Suspect]
     Active Substance: FLUTICASONE PROPIONATE
     Route: 045
     Dates: start: 20200401, end: 20200403
  2. XHANCE [Suspect]
     Active Substance: FLUTICASONE PROPIONATE
     Route: 045
     Dates: start: 20200406
  3. XHANCE [Suspect]
     Active Substance: FLUTICASONE PROPIONATE
     Indication: NASAL SEPTUM DEVIATION
     Route: 045
     Dates: start: 201909

REACTIONS (13)
  - Irregular breathing [Not Recovered/Not Resolved]
  - Nasal dryness [Unknown]
  - Dyspnoea [Recovered/Resolved]
  - Weight increased [Not Recovered/Not Resolved]
  - Device leakage [Recovered/Resolved]
  - Stress [Recovered/Resolved]
  - Acne [Not Recovered/Not Resolved]
  - Acne cystic [Unknown]
  - Product use issue [Unknown]
  - Anxiety [Not Recovered/Not Resolved]
  - Nasal congestion [Recovered/Resolved]
  - Device malfunction [Unknown]
  - Product use in unapproved indication [Unknown]

NARRATIVE: CASE EVENT DATE: 2019
